FAERS Safety Report 24017286 (Version 1)
Quarter: 2024Q2

REPORT INFORMATION
  Report Type: Spontaneous
  Country: CH (occurrence: CH)
  Receive Date: 20240627
  Receipt Date: 20240627
  Transmission Date: 20240716
  Serious: Yes (Hospitalization)
  Sender: FDA-Public Use
  Company Number: CH-STRIDES ARCOLAB LIMITED-2024SP007560

PATIENT
  Age: 60 Year
  Sex: Male

DRUGS (5)
  1. PREDNISOLONE [Suspect]
     Active Substance: PREDNISOLONE
     Indication: Hyperthyroidism
     Dosage: 40 MILLIGRAM, QD
     Route: 065
  2. CARBIMAZOLE [Suspect]
     Active Substance: CARBIMAZOLE
     Indication: Hyperthyroidism
     Dosage: 60 MILLIGRAM, QD
     Route: 065
  3. SODIUM PERCHLORATE [Suspect]
     Active Substance: SODIUM PERCHLORATE
     Indication: Hyperthyroidism
     Dosage: 900 MILLIGRAM, QD
     Route: 065
  4. AMIODARONE [Concomitant]
     Active Substance: AMIODARONE
     Indication: Ventricular tachycardia
     Dosage: UNK
     Route: 065
  5. IODINE [Concomitant]
     Active Substance: IODINE
     Indication: Diagnostic procedure
     Dosage: UNK
     Route: 065

REACTIONS (1)
  - Therapy non-responder [Unknown]
